FAERS Safety Report 17926491 (Version 1)
Quarter: 2020Q2

REPORT INFORMATION
  Report Type: Spontaneous
  Country: US (occurrence: US)
  Receive Date: 20200623
  Receipt Date: 20200623
  Transmission Date: 20200714
  Serious: Yes (Other)
  Sender: FDA-Public Use
  Company Number: US-AUROBINDO-AUR-APL-2020-030018

PATIENT
  Age: 59 Year
  Sex: Male

DRUGS (3)
  1. WARFARIN [Suspect]
     Active Substance: WARFARIN
     Indication: ANTICOAGULANT THERAPY
     Dosage: 1 DOSAGE FORM
     Route: 048
  2. BIVALIRUDIN. [Suspect]
     Active Substance: BIVALIRUDIN
     Indication: ANTICOAGULANT THERAPY
     Dosage: 0.75 MILLIGRAM/KILOGRAM
     Route: 040
  3. BIVALIRUDIN. [Suspect]
     Active Substance: BIVALIRUDIN
     Dosage: 0.3 MILLIGRAM/KILOGRAM (ADDITIONAL 0.3 MG/KG BOLUS
     Route: 040

REACTIONS (2)
  - Haemorrhage [Recovering/Resolving]
  - Pericardial effusion [Recovering/Resolving]
